FAERS Safety Report 21376740 (Version 1)
Quarter: 2022Q3

REPORT INFORMATION
  Report Type: Spontaneous
  Country: US (occurrence: None)
  Receive Date: 20220924
  Receipt Date: 20220924
  Transmission Date: 20221027
  Serious: No
  Sender: FDA-Public Use
  Company Number: None

PATIENT
  Age: 65 Year
  Sex: Female
  Weight: 92.25 kg

DRUGS (2)
  1. DEXTROAMPHETAMINE [Suspect]
     Active Substance: DEXTROAMPHETAMINE
     Indication: Narcolepsy
     Dosage: OTHER QUANTITY : 60 TABLET(S);?FREQUENCY : TWICE A DAY;?
     Route: 048
  2. DEXTROAMPHETAMINE [Suspect]
     Active Substance: DEXTROAMPHETAMINE
     Indication: Attention deficit hyperactivity disorder

REACTIONS (6)
  - Product substitution issue [None]
  - Drug ineffective [None]
  - Fatigue [None]
  - Disturbance in attention [None]
  - Mood altered [None]
  - Abdominal pain upper [None]

NARRATIVE: CASE EVENT DATE: 20220830
